FAERS Safety Report 16828177 (Version 1)
Quarter: 2019Q3

REPORT INFORMATION
  Report Type: Spontaneous
  Country: US (occurrence: US)
  Receive Date: 20190730
  Receipt Date: 20190730
  Transmission Date: 20191005
  Serious: No
  Sender: FDA-Public Use
  Company Number: None

PATIENT
  Age: 70 Year
  Sex: Female

DRUGS (1)
  1. DEPO-ESTRADIOL [Suspect]
     Active Substance: ESTRADIOL CYPIONATE
     Indication: GENDER DYSPHORIA
     Route: 030
     Dates: start: 20181107

REACTIONS (2)
  - Intentional product use issue [None]
  - Refusal of treatment by patient [None]

NARRATIVE: CASE EVENT DATE: 20190730
